FAERS Safety Report 5233407-3 (Version None)
Quarter: 2007Q1

REPORT INFORMATION
  Report Type: 
  Country: None (occurrence: None)
  Receive Date: 20070206
  Receipt Date: 20070206
  Transmission Date: 20070707
  Serious: Yes (Other)
  Sender: FDA-Public Use
  Company Number: 2006JP005034

PATIENT
  Age: 2 Year
  Sex: Male
  Weight: 10.5 kg

DRUGS (5)
  1. PROTOPIC [Suspect]
     Indication: DERMATITIS ATOPIC
     Dosage: 0.03%, TOPICAL
     Route: 061
     Dates: start: 20051224, end: 20060327
  2. LOCOID [Concomitant]
  3. WHITE PETROLEUM (PETROLATUM) [Concomitant]
  4. RINDERON-VG (GENTAMICIN SULFATE) [Concomitant]
  5. UREPEARL (UREA)LOTION [Concomitant]

REACTIONS (2)
  - HERPES VIRUS INFECTION [None]
  - KAPOSI'S VARICELLIFORM ERUPTION [None]
